FAERS Safety Report 7230608-X (Version None)
Quarter: 2011Q1

REPORT INFORMATION
  Report Type: 
  Country: None (occurrence: None)
  Receive Date: 20110118
  Receipt Date: 20110104
  Transmission Date: 20110831
  Serious: No
  Sender: FDA-Public Use
  Company Number: US-B.I. PHARMACEUTICALS,INC./RIDGEFIELD-2010-BP-13817BP

PATIENT
  Age: 72 Year
  Sex: Female

DRUGS (6)
  1. PRADAXA [Suspect]
     Indication: ATRIAL FIBRILLATION
  2. MULTIVITAMIN [Concomitant]
  3. LASIX [Concomitant]
  4. K-DUR [Concomitant]
  5. ALLOPURINOL [Concomitant]
  6. PRADAXA [Suspect]
     Indication: CEREBROVASCULAR ACCIDENT PROPHYLAXIS
     Dosage: 300 MG
     Route: 048
     Dates: start: 20101123

REACTIONS (6)
  - PARAESTHESIA [None]
  - ARTHRITIS [None]
  - GAIT DISTURBANCE [None]
  - DRY MOUTH [None]
  - ARTHRALGIA [None]
  - PHYSIOTHERAPY [None]
